FAERS Safety Report 16645346 (Version 2)
Quarter: 2019Q3

REPORT INFORMATION
  Report Type: Spontaneous
  Country: NO (occurrence: NO)
  Receive Date: 20190729
  Receipt Date: 20190817
  Transmission Date: 20191004
  Serious: Yes (Hospitalization, Other)
  Sender: FDA-Public Use
  Company Number: NO-009507513-1907NOR012853

PATIENT
  Sex: Male

DRUGS (15)
  1. DULCOLAX NOS [Concomitant]
     Active Substance: BISACODYL OR DOCUSATE SODIUM
     Dosage: EVERY MONDAY AND THURSDAY
  2. PANODIL [Concomitant]
     Active Substance: ACETAMINOPHEN
  3. SINEMET [Suspect]
     Active Substance: CARBIDOPA\LEVODOPA
     Dosage: 12.5 MG/ 50 MG; 3 TIMES DAILY
     Route: 048
  4. CIPRALEX [Concomitant]
     Active Substance: ESCITALOPRAM OXALATE
  5. SINEMET [Suspect]
     Active Substance: CARBIDOPA\LEVODOPA
     Dosage: 12.5 MG/ 50 MG; 2 TIMES DAILY
     Route: 048
  6. SINEMET [Suspect]
     Active Substance: CARBIDOPA\LEVODOPA
     Indication: PARKINSON^S DISEASE
     Dosage: TABLETS 25MG/100 MG 4 TIMES DAILY
     Route: 048
  7. SINEMET [Suspect]
     Active Substance: CARBIDOPA\LEVODOPA
     Dosage: TABLETS 25MG/100 MG 5 TIMES DAILY
     Route: 048
  8. KLYX [Concomitant]
     Active Substance: DOCUSATE SODIUM
     Dosage: EVERY MONDAY AND THURSDAY
  9. BRONKYL [Concomitant]
     Indication: DYSPHAGIA
  10. SINEMET [Suspect]
     Active Substance: CARBIDOPA\LEVODOPA
     Dosage: 12.5 MG/ 50 MG; 3 TIMES DAILY
     Route: 048
  11. LAXOBERAL [Concomitant]
     Active Substance: SODIUM PICOSULFATE
     Dosage: 10 GTT DROPS, BIW
  12. VITAMINS (UNSPECIFIED) [Concomitant]
     Active Substance: VITAMINS
  13. SINEMET [Suspect]
     Active Substance: CARBIDOPA\LEVODOPA
     Indication: PARKINSON^S DISEASE
     Dosage: 12.5 MG/ 50 MG; 3 TIMES DAILY
     Route: 048
  14. SINEMET [Suspect]
     Active Substance: CARBIDOPA\LEVODOPA
     Dosage: 12.5 MG/ 50 MG; 4 TIMES DAILY
     Route: 048
  15. IRON (UNSPECIFIED) [Concomitant]
     Active Substance: IRON
     Route: 048

REACTIONS (6)
  - Hallucination [Recovered/Resolved]
  - Parkinson^s disease [Unknown]
  - Mobility decreased [Unknown]
  - Balance disorder [Unknown]
  - Constipation [Unknown]
  - Wrong technique in product usage process [Unknown]

NARRATIVE: CASE EVENT DATE: 2018
